FAERS Safety Report 12851341 (Version 4)
Quarter: 2016Q4

REPORT INFORMATION
  Report Type: Report from Study
  Country: US (occurrence: US)
  Receive Date: 20161016
  Receipt Date: 20161201
  Transmission Date: 20170207
  Serious: No
  Sender: FDA-Public Use
  Company Number: US-AMGEN-USASL2016140155

PATIENT
  Age: 38 Year
  Sex: Female

DRUGS (3)
  1. ENBREL [Suspect]
     Active Substance: ETANERCEPT
     Indication: PSORIATIC ARTHROPATHY
     Dosage: 50 MG, QWK
     Route: 065
  2. ENBREL [Suspect]
     Active Substance: ETANERCEPT
     Dosage: UNK
     Route: 065
  3. METHOTREXATE. [Suspect]
     Active Substance: METHOTREXATE
     Indication: PRODUCT USED FOR UNKNOWN INDICATION
     Dosage: UNK
     Route: 065

REACTIONS (8)
  - Injection site erythema [Recovered/Resolved]
  - Muscle spasms [Not Recovered/Not Resolved]
  - Injection site discomfort [Unknown]
  - Alopecia [Unknown]
  - Musculoskeletal pain [Unknown]
  - Mood swings [Unknown]
  - Crying [Unknown]
  - Depressed mood [Unknown]
